FAERS Safety Report 8285657-X (Version None)
Quarter: 2012Q2

REPORT INFORMATION
  Report Type: 
  Country: None (occurrence: None)
  Receive Date: 20120413
  Receipt Date: 20111107
  Transmission Date: 20120825
  Serious: No
  Sender: FDA-Public Use
  Company Number: US-ASTRAZENECA-2011SE67266

PATIENT
  Age: 85 Year
  Sex: Female

DRUGS (2)
  1. NEXIUM [Suspect]
     Route: 048
  2. OMEPRAZOLE [Suspect]
     Route: 048

REACTIONS (6)
  - OSTEOPOROSIS [None]
  - DIZZINESS [None]
  - ASTHENIA [None]
  - ALOPECIA [None]
  - BODY HEIGHT DECREASED [None]
  - SCOLIOSIS [None]
